FAERS Safety Report 6728514-X (Version None)
Quarter: 2010Q2

REPORT INFORMATION
  Report Type: 
  Country: None (occurrence: None)
  Receive Date: 20100517
  Receipt Date: 20100510
  Transmission Date: 20101027
  Serious: Yes (Other)
  Sender: FDA-Public Use
  Company Number: US-PFIZER INC-2010053933

PATIENT
  Sex: Female
  Weight: 75.737 kg

DRUGS (1)
  1. CHANTIX [Suspect]
     Indication: SMOKING CESSATION THERAPY
     Dosage: 0.5 MG, DAILY
     Route: 048
     Dates: start: 20100419, end: 20100429

REACTIONS (4)
  - BLOOD GLUCOSE DECREASED [None]
  - DEPRESSED MOOD [None]
  - MEMORY IMPAIRMENT [None]
  - NERVOUSNESS [None]
